FAERS Safety Report 18095011 (Version 1)
Quarter: 2020Q3

REPORT INFORMATION
  Report Type: Spontaneous
  Country: GB (occurrence: GB)
  Receive Date: 20200730
  Receipt Date: 20200730
  Transmission Date: 20201103
  Serious: Yes (Life-Threatening, Hospitalization, Other)
  Sender: FDA-Public Use
  Company Number: GB-JAZZ-2020-GB-009312

PATIENT
  Age: 39 Year
  Sex: Female
  Weight: 58.5 kg

DRUGS (1)
  1. VYXEOS [Suspect]
     Active Substance: CYTARABINE\DAUNORUBICIN
     Indication: ACUTE MYELOID LEUKAEMIA
     Dosage: 144 MILLIGRAM/SQ. METER
     Route: 042
     Dates: start: 20200528, end: 20200601

REACTIONS (6)
  - Pleural effusion [Unknown]
  - Cardiac tamponade [Unknown]
  - Pericardial effusion [Unknown]
  - Chest pain [Unknown]
  - Peripheral swelling [Recovering/Resolving]
  - Aortitis [Recovering/Resolving]

NARRATIVE: CASE EVENT DATE: 20200529
